FAERS Safety Report 7038224-X (Version None)
Quarter: 2010Q4

REPORT INFORMATION
  Report Type: 
  Country: None (occurrence: None)
  Receive Date: 20101011
  Receipt Date: 20091026
  Transmission Date: 20110411
  Serious: No
  Sender: FDA-Public Use
  Company Number: US-PFIZER INC-2009289767

PATIENT
  Sex: Female
  Weight: 99.773 kg

DRUGS (4)
  1. NEURONTIN [Suspect]
     Indication: CONVULSION
     Dosage: 100 MG, 1X/DAY
  2. LEVOTHYROXINE [Concomitant]
     Dosage: UNK
     Route: 048
  3. AMILORIDE [Concomitant]
     Dosage: UNK
     Route: 048
  4. ZOLOFT [Concomitant]
     Dosage: UNK
     Route: 048

REACTIONS (5)
  - HYPERHIDROSIS [None]
  - MALAISE [None]
  - MENOPAUSE [None]
  - NIGHT SWEATS [None]
  - SOMNOLENCE [None]
